FAERS Safety Report 11101157 (Version 2)
Quarter: 2015Q3

REPORT INFORMATION
  Report Type: Spontaneous
  Country: US (occurrence: US)
  Receive Date: 20150508
  Receipt Date: 20150717
  Transmission Date: 20151125
  Serious: Yes (Other)
  Sender: FDA-Public Use
  Company Number: US-PFIZER INC-2015156823

PATIENT
  Age: 51 Year
  Sex: Female
  Weight: 96 kg

DRUGS (7)
  1. MS CONTIN [Concomitant]
     Active Substance: MORPHINE SULFATE
     Dosage: 60 MG, 2X/DAY, EVERY 12 HOURS
     Route: 048
  2. CAMPTOSAR [Suspect]
     Active Substance: IRINOTECAN HYDROCHLORIDE
     Indication: SMALL INTESTINE CARCINOMA
     Dosage: 383 MG (100 MG), CYCLIC EVERY TWO WEEKS (EVERY 14 DAYS)
     Route: 042
     Dates: start: 20141202
  3. DIPHENHYDRAMINE. [Concomitant]
     Active Substance: DIPHENHYDRAMINE
     Dosage: 50 MG, UNK (BEFORE CHEMOTHERAPY)
     Route: 042
  4. CAMPTOSAR [Suspect]
     Active Substance: IRINOTECAN HYDROCHLORIDE
     Dosage: 383 MG (300 MG), CYCLIC EVERY TWO WEEKS (EVERY 14 DAYS)
     Route: 042
     Dates: end: 20150421
  5. FLUOROURACIL. [Concomitant]
     Active Substance: FLUOROURACIL
     Dosage: 852 MG, EVERY 2 WEEKS
     Route: 042
  6. LEUCOVORIN. [Concomitant]
     Active Substance: LEUCOVORIN
     Dosage: 852 MG, EVERY 2 WEEKS
     Route: 042
  7. LOSARTAN. [Concomitant]
     Active Substance: LOSARTAN
     Dosage: 100 MG, DAILY
     Route: 048

REACTIONS (4)
  - Product use issue [Unknown]
  - Seizure [Recovering/Resolving]
  - Disease progression [Not Recovered/Not Resolved]
  - Small intestine carcinoma [Not Recovered/Not Resolved]

NARRATIVE: CASE EVENT DATE: 20141202
